FAERS Safety Report 4410308-1 (Version None)
Quarter: 2004Q2

REPORT INFORMATION
  Report Type: 
  Country: None (occurrence: None)
  Receive Date: 20040618
  Receipt Date: 20040326
  Transmission Date: 20050107
  Serious: No
  Sender: FDA-Public Use
  Company Number: US-JNJFOC-20040306609

PATIENT
  Age: 34 Year
  Sex: Female
  Weight: 50.3493 kg

DRUGS (2)
  1. ORTHO EVRA [Suspect]
     Indication: CONTRACEPTION
     Dosage: 1 DOSE (S), 3 IN 4 WEEK, TRANSDERMAL
     Route: 062
     Dates: start: 20040325
  2. FERROUS SULFATE TAB [Concomitant]

REACTIONS (7)
  - ABDOMINAL PAIN [None]
  - COUGH [None]
  - MENSTRUAL DISORDER [None]
  - NAUSEA [None]
  - PYREXIA [None]
  - SNEEZING [None]
  - VOMITING [None]
